FAERS Safety Report 15848873 (Version 5)
Quarter: 2019Q1

REPORT INFORMATION
  Report Type: Spontaneous
  Country: IL (occurrence: IL)
  Receive Date: 20190121
  Receipt Date: 20190318
  Transmission Date: 20190417
  Serious: Yes (Other)
  Sender: FDA-Public Use
  Company Number: IL-AMGEN-ISRSP2019008048

PATIENT
  Age: 25 Year
  Sex: Female

DRUGS (2)
  1. ENBREL [Suspect]
     Active Substance: ETANERCEPT
     Dosage: 25 MG ONCE IN TWO WEEKS
     Route: 065
     Dates: start: 2018, end: 20181121
  2. ENBREL [Suspect]
     Active Substance: ETANERCEPT
     Indication: PSORIATIC ARTHROPATHY
     Dosage: 25 MG, EVERY 10 DAYS
     Route: 065
     Dates: start: 2016

REACTIONS (2)
  - Product use issue [Unknown]
  - Leishmaniasis [Recovered/Resolved]

NARRATIVE: CASE EVENT DATE: 201806
